FAERS Safety Report 8984680 (Version 3)
Quarter: 2013Q1

REPORT INFORMATION
  Report Type: Spontaneous
  Country: BR (occurrence: BR)
  Receive Date: 20121225
  Receipt Date: 20130304
  Transmission Date: 20140127
  Serious: Yes (Other)
  Sender: FDA-Public Use
  Company Number: BR-JNJFOC-20121208212

PATIENT
  Age: 13 Year
  Sex: Male
  Weight: 38.5 kg

DRUGS (6)
  1. INTELENCE [Suspect]
     Indication: ANTIRETROVIRAL THERAPY
     Route: 048
     Dates: start: 20121128, end: 20121212
  2. PREZISTA [Suspect]
     Indication: ANTIRETROVIRAL THERAPY
     Route: 065
     Dates: start: 2008, end: 20121212
  3. HUMAN PAPILLOMA VIRUS VACCINE [Concomitant]
     Indication: HUMAN PAPILLOMA VIRUS IMMUNISATION
     Route: 065
     Dates: start: 20121128
  4. VIREAD [Concomitant]
     Route: 065
     Dates: start: 2008, end: 20121212
  5. EPIVIR [Concomitant]
     Route: 065
     Dates: start: 2008, end: 20121212
  6. ISENTRESS [Concomitant]
     Indication: TREATMENT NONCOMPLIANCE
     Route: 065
     Dates: start: 2008, end: 20121212

REACTIONS (7)
  - Rash [Unknown]
  - Skin exfoliation [Unknown]
  - Dermatitis bullous [Unknown]
  - Malaise [Unknown]
  - Pyrexia [Unknown]
  - Pruritus [Unknown]
  - Treatment noncompliance [Unknown]
